FAERS Safety Report 5660909-8 (Version None)
Quarter: 2008Q1

REPORT INFORMATION
  Report Type: 
  Country: None (occurrence: None)
  Receive Date: 20080311
  Receipt Date: 20080306
  Transmission Date: 20080703
  Serious: Yes (Hospitalization)
  Sender: FDA-Public Use
  Company Number: FR-WYE-G00943208

PATIENT
  Sex: Female

DRUGS (13)
  1. TAZOCILLINE [Suspect]
     Indication: PNEUMONIA
     Route: 042
     Dates: start: 20071006, end: 20071007
  2. TAZOCILLINE [Suspect]
     Route: 042
     Dates: start: 20071008, end: 20071010
  3. LEVOTHYROX [Concomitant]
     Indication: HYPOTHYROIDISM
     Dosage: 100 UG TOTAL DAILY
     Route: 048
  4. HYDROCORTISONE [Concomitant]
     Dosage: 20 MG; FREQUENCY UNSPECIFIED
  5. LIPANTHYL [Concomitant]
     Route: 048
  6. VITAMIN D3 [Concomitant]
     Route: 048
  7. CACIT [Concomitant]
     Route: 048
  8. LOVENOX [Concomitant]
     Indication: MOBILITY DECREASED
     Dosage: UNKNOWN
  9. ACETAMINOPHEN [Concomitant]
     Dosage: UNKNOWN
  10. ALUMINUM HYDROXIDE AND MAGNESIUM TRISILICATE [Concomitant]
     Dosage: UNKNOWN
     Route: 048
  11. DEPAKENE [Suspect]
     Indication: PETIT MAL EPILEPSY
     Route: 048
     Dates: end: 20071007
  12. DEPAKENE [Suspect]
     Dosage: 1250 MG TOTAL DAILY
     Route: 048
     Dates: start: 20071008
  13. MINIRIN [Concomitant]

REACTIONS (2)
  - CONFUSIONAL STATE [None]
  - DELIRIUM [None]
